FAERS Safety Report 11544171 (Version 1)
Quarter: 2015Q3

REPORT INFORMATION
  Report Type: Spontaneous
  Country: DE (occurrence: DE)
  Receive Date: 20150924
  Receipt Date: 20150924
  Transmission Date: 20151125
  Serious: Yes (Hospitalization)
  Sender: FDA-Public Use
  Company Number: DE-JNJFOC-20150910815

PATIENT
  Age: 14 Year
  Sex: Female
  Weight: 54 kg

DRUGS (6)
  1. AUGMENTAN [Concomitant]
     Active Substance: AMOXICILLIN\CLAVULANATE POTASSIUM
     Indication: FEBRILE INFECTION
     Route: 048
     Dates: start: 20150809, end: 20150816
  2. CIPROFLOXACIN. [Concomitant]
     Active Substance: CIPROFLOXACIN
     Indication: OTITIS MEDIA
     Route: 048
     Dates: start: 20150816
  3. CIPROFLOXACIN. [Concomitant]
     Active Substance: CIPROFLOXACIN
     Indication: OTITIS MEDIA
     Route: 065
     Dates: start: 20150816
  4. PARACETAMOL [Concomitant]
     Active Substance: ACETAMINOPHEN
     Indication: EAR PAIN
     Dosage: AS NEEDED
     Route: 048
  5. IBUPROFEN. [Suspect]
     Active Substance: IBUPROFEN
     Indication: EAR PAIN
     Route: 048
     Dates: start: 20150814, end: 20150818
  6. IBUPROFEN. [Suspect]
     Active Substance: IBUPROFEN
     Route: 048

REACTIONS (1)
  - Acute kidney injury [Recovering/Resolving]

NARRATIVE: CASE EVENT DATE: 20150819
